FAERS Safety Report 23264060 (Version 1)
Quarter: 2023Q4

REPORT INFORMATION
  Report Type: Other
  Country: DE (occurrence: DE)
  Receive Date: 20231205
  Receipt Date: 20231205
  Transmission Date: 20240110
  Serious: Yes (Death, Hospitalization, Other)
  Sender: FDA-Public Use
  Company Number: None

PATIENT
  Sex: Male

DRUGS (1)
  1. ENZALUTAMIDE [Suspect]
     Active Substance: ENZALUTAMIDE
     Indication: Product used for unknown indication
     Dosage: UNK UNK, UNKNOWN FREQ.
     Route: 065

REACTIONS (6)
  - Cardiac arrest [Fatal]
  - Torsade de pointes [Unknown]
  - Circulatory collapse [Unknown]
  - Bradyarrhythmia [Unknown]
  - Ventricular fibrillation [Unknown]
  - Extrasystoles [Unknown]

NARRATIVE: CASE EVENT DATE: 20231101
